FAERS Safety Report 20440493 (Version 2)
Quarter: 2022Q1

REPORT INFORMATION
  Report Type: Report from Study
  Country: AR (occurrence: AR)
  Receive Date: 20220207
  Receipt Date: 20220216
  Transmission Date: 20220424
  Serious: Yes (Life-Threatening, Hospitalization, Other)
  Sender: FDA-Public Use
  Company Number: AR-BRISTOL-MYERS SQUIBB COMPANY-BMS-2022-017749

PATIENT
  Age: 59 Year
  Sex: Female
  Weight: 80 kg

DRUGS (6)
  1. NIVOLUMAB [Suspect]
     Active Substance: NIVOLUMAB
     Indication: Breast cancer
     Dosage: 100 MILLILITER
     Route: 042
     Dates: start: 20211221, end: 20211221
  2. PACLITAXEL [Suspect]
     Active Substance: PACLITAXEL
     Indication: Breast cancer
     Dosage: 100 MILLIGRAM
     Route: 042
     Dates: start: 20211221, end: 20220105
  3. ROSUVASTATIN [Concomitant]
     Active Substance: ROSUVASTATIN
     Indication: Product used for unknown indication
     Dosage: 10 MILLIGRAM
     Route: 048
     Dates: start: 202104
  4. LEVOTHYROXINE [Concomitant]
     Active Substance: LEVOTHYROXINE
     Indication: Product used for unknown indication
     Dosage: 50 MICROGRAM
     Route: 048
     Dates: start: 2015
  5. MEPREDNISONE [Concomitant]
     Active Substance: MEPREDNISONE
     Indication: Product used for unknown indication
     Dosage: 80 MILLIGRAM
     Route: 048
     Dates: start: 20220127, end: 20220202
  6. MEPREDNISONE [Concomitant]
     Active Substance: MEPREDNISONE
     Dosage: 40 MILLIGRAM
     Route: 048
     Dates: start: 20220202, end: 20220202

REACTIONS (1)
  - Anaphylactic shock [Recovered/Resolved]

NARRATIVE: CASE EVENT DATE: 20220202
